FAERS Safety Report 10458178 (Version 1)
Quarter: 2014Q3

REPORT INFORMATION
  Report Type: Spontaneous
  Country: US (occurrence: US)
  Receive Date: 20140917
  Receipt Date: 20140917
  Transmission Date: 20150326
  Serious: Yes (Hospitalization)
  Sender: FDA-Public Use
  Company Number: US-UNITED THERAPEUTICS-UNT-2014-007275

PATIENT
  Sex: Female
  Weight: 67.3 kg

DRUGS (1)
  1. REMODULIN [Suspect]
     Active Substance: TREPROSTINIL
     Indication: PULMONARY HYPERTENSION
     Dosage: 0.146 ?G/KG, CONTINUING
     Route: 058
     Dates: start: 20110503

REACTIONS (4)
  - Gastrointestinal disorder [Unknown]
  - Flushing [Unknown]
  - Weight decreased [Unknown]
  - Accidental overdose [Unknown]

NARRATIVE: CASE EVENT DATE: 20140904
